FAERS Safety Report 8302584-X (Version None)
Quarter: 2012Q2

REPORT INFORMATION
  Report Type: 
  Country: None (occurrence: None)
  Receive Date: 20120420
  Receipt Date: 20120413
  Transmission Date: 20120825
  Serious: Yes (Other)
  Sender: FDA-Public Use
  Company Number: US-AMGEN-USASP2012023678

PATIENT
  Age: 60 Year
  Sex: Female

DRUGS (8)
  1. LORAZEPAM [Concomitant]
     Dosage: UNK
  2. NEXIUM                            /01479303/ [Concomitant]
     Dosage: UNK
  3. METOPROLOL TARTRATE [Concomitant]
     Dosage: UNK
  4. AMBIEN [Concomitant]
     Dosage: UNK
  5. TRIAMTERENE AND HYDROCHLOROTHIAZIDE [Concomitant]
     Dosage: UNK
  6. ENBREL [Suspect]
     Indication: PSORIASIS
     Dosage: 50 MG, 2 TIMES/WK
     Dates: start: 20120301
  7. LEXAPRO [Concomitant]
     Dosage: UNK
  8. BENAZEPRIL HYDROCHLORIDE [Concomitant]
     Dosage: UNK

REACTIONS (6)
  - INJECTION SITE PAIN [None]
  - INJECTION SITE DISCOLOURATION [None]
  - INJECTION SITE ERYTHEMA [None]
  - NASOPHARYNGITIS [None]
  - DEPRESSION [None]
  - INJECTION SITE SWELLING [None]
